FAERS Safety Report 5624234-3 (Version None)
Quarter: 2008Q1

REPORT INFORMATION
  Report Type: 
  Country: None (occurrence: None)
  Receive Date: 20080213
  Receipt Date: 20080206
  Transmission Date: 20080703
  Serious: Yes (Other)
  Sender: FDA-Public Use
  Company Number: PHHY2008JP01437

PATIENT
  Age: 53 Year
  Sex: Female

DRUGS (7)
  1. SIMULECT [Suspect]
     Indication: RENAL TRANSPLANT
     Route: 042
  2. RITUXAN [Suspect]
     Indication: RENAL TRANSPLANT
     Dosage: 100 MG/ DAY
     Route: 042
  3. RITUXAN [Suspect]
     Dosage: 200 MG / DAY
     Route: 042
  4. MEDROL [Suspect]
     Indication: RENAL TRANSPLANT
     Route: 048
  5. PROGRAF [Suspect]
     Indication: RENAL TRANSPLANT
  6. CELLCEPT [Suspect]
     Indication: RENAL TRANSPLANT
     Route: 048
  7. BREDININ [Concomitant]
     Indication: RENAL TRANSPLANT
     Route: 048

REACTIONS (4)
  - BONE MARROW FAILURE [None]
  - HEPATIC FUNCTION ABNORMAL [None]
  - PLATELET COUNT DECREASED [None]
  - TRANSPLANT REJECTION [None]
